FAERS Safety Report 9375275 (Version 1)
Quarter: 2013Q2

REPORT INFORMATION
  Report Type: Spontaneous
  Country: FR (occurrence: FR)
  Receive Date: 20130628
  Receipt Date: 20130628
  Transmission Date: 20140414
  Serious: Yes (Death, Hospitalization)
  Sender: FDA-Public Use
  Company Number: FR-TEVA-415413ISR

PATIENT
  Age: 96 Year
  Sex: Male

DRUGS (8)
  1. FUROSEMIDE TEVA 40 MG [Suspect]
     Indication: ACUTE PULMONARY OEDEMA
     Dosage: 1 DOSAGE FORMS DAILY;
     Route: 048
     Dates: start: 201306, end: 20130607
  2. FUROSEMIDE TEVA 500 MG [Concomitant]
     Indication: CARDIAC FAILURE
     Dosage: 250 MILLIGRAM DAILY; ON MORNING AND EVENING
     Route: 048
     Dates: end: 20130607
  3. KENZEN [Concomitant]
     Dosage: 8 MILLIGRAM DAILY; ON MORNING
  4. PLAVIX [Concomitant]
     Dosage: 75 MILLIGRAM DAILY; ON MORNING
  5. INEXIUM [Concomitant]
     Dosage: 20 MILLIGRAM DAILY; ON EVENING
  6. SINGULAIR [Concomitant]
     Dosage: 10 MILLIGRAM DAILY; ON MORNING
  7. DISCOTRINE [Concomitant]
     Dosage: 10 MILLIGRAM DAILY;
  8. DOLIPRANE [Concomitant]
     Indication: PAIN

REACTIONS (3)
  - Cardiac failure [Fatal]
  - Deep vein thrombosis [Unknown]
  - Pulmonary embolism [Unknown]
